FAERS Safety Report 5916606-4 (Version None)
Quarter: 2008Q4

REPORT INFORMATION
  Report Type: 
  Country: None (occurrence: None)
  Receive Date: 20081013
  Receipt Date: 20081003
  Transmission Date: 20090506
  Serious: Yes (Other)
  Sender: FDA-Public Use
  Company Number: HQWYE295021JUL04

PATIENT
  Sex: Female

DRUGS (5)
  1. PREMPRO [Suspect]
     Indication: HORMONE REPLACEMENT THERAPY
     Dosage: UNKNOWN
     Route: 048
  2. MEDROXYPROGESTERONE [Suspect]
     Dosage: UNKNOWN
  3. ESTROGENIC SUBSTANCE [Suspect]
     Dosage: UNKNOWN
  4. CONJUGATED ESTROGENS [Suspect]
     Dosage: UNKNOWN
     Route: 048
  5. PROVERA [Suspect]
     Dosage: UNKNOWN
     Route: 048

REACTIONS (2)
  - BREAST CANCER [None]
  - THROMBOSIS [None]
